FAERS Safety Report 9850958 (Version 8)
Quarter: 2014Q2

REPORT INFORMATION
  Report Type: Report from Study
  Country: US (occurrence: US)
  Receive Date: 20140128
  Receipt Date: 20140618
  Transmission Date: 20141212
  Serious: Yes (Death, Hospitalization)
  Sender: FDA-Public Use
  Company Number: US-ACTELION-A-US2013-93153

PATIENT
  Age: 57 Year
  Sex: Male

DRUGS (4)
  1. VELETRI [Suspect]
     Indication: PORTOPULMONARY HYPERTENSION
     Dosage: 19 NG/KG, PER MIN
     Route: 042
     Dates: start: 20131107
  2. VELETRI [Suspect]
     Dosage: 11 NG/KG, PER MIN
     Route: 042
     Dates: start: 201309
  3. VELETRI [Suspect]
     Dosage: 12 NG/KG, PER MIN
     Route: 042
     Dates: end: 20140604
  4. SILDENAFIL [Concomitant]

REACTIONS (12)
  - Hepatic failure [Fatal]
  - Hepatic cirrhosis [Recovering/Resolving]
  - Abdominal distension [Unknown]
  - Transfusion [Recovering/Resolving]
  - Dyspnoea [Unknown]
  - Oedema [Recovering/Resolving]
  - Fluid retention [Recovering/Resolving]
  - Oxygen saturation decreased [Recovering/Resolving]
  - Platelet count decreased [Unknown]
  - Weight increased [Recovering/Resolving]
  - Anaemia [Unknown]
  - Haemoglobin decreased [Unknown]
